FAERS Safety Report 4485931-9 (Version None)
Quarter: 2004Q4

REPORT INFORMATION
  Report Type: 
  Country: None (occurrence: None)
  Receive Date: 20041026
  Receipt Date: 20041011
  Transmission Date: 20050328
  Serious: Yes (Other)
  Sender: FDA-Public Use
  Company Number: 002920

PATIENT
  Age: 26 Year
  Sex: Female
  Weight: 65.8 kg

DRUGS (3)
  1. AVIANE (LEVONORGESTREL/ ETHINYL ESTRADIOL) TABLET [Suspect]
     Indication: MENSTRUATION IRREGULAR
     Dosage: 1.00 TABLET, QD, ORAL
     Route: 048
     Dates: start: 20040801, end: 20040801
  2. ENBREL [Concomitant]
  3. ALEVE [Concomitant]

REACTIONS (6)
  - ABDOMINAL PAIN UPPER [None]
  - BURNING SENSATION [None]
  - DERMATITIS [None]
  - GASTRITIS [None]
  - NAUSEA [None]
  - PRURITUS [None]
